FAERS Safety Report 13813871 (Version 7)
Quarter: 2017Q4

REPORT INFORMATION
  Report Type: Spontaneous
  Country: US (occurrence: US)
  Receive Date: 20170731
  Receipt Date: 20171106
  Transmission Date: 20180320
  Serious: Yes (Death, Other)
  Sender: FDA-Public Use
  Company Number: US-PFIZER INC-2017327404

PATIENT
  Age: 58 Year
  Sex: Female
  Weight: 200.6 kg

DRUGS (2)
  1. IBRANCE [Suspect]
     Active Substance: PALBOCICLIB
     Indication: BREAST CANCER METASTATIC
     Dosage: 125 MG, CYCLIC (D 1-21 Q 28 DAYS)
     Route: 048
     Dates: start: 20170712
  2. IBRANCE [Suspect]
     Active Substance: PALBOCICLIB
     Dosage: 100 MG, CYCLIC (D 1-21 Q 28 DAYS)
     Route: 048
     Dates: start: 20170712

REACTIONS (13)
  - Muscle spasms [Recovered/Resolved]
  - Peripheral swelling [Recovering/Resolving]
  - Platelet count decreased [Unknown]
  - Dyspnoea [Unknown]
  - Death [Fatal]
  - Muscle spasms [Not Recovered/Not Resolved]
  - Abdominal distension [Recovering/Resolving]
  - Musculoskeletal pain [Recovered/Resolved]
  - White blood cell count decreased [Unknown]
  - Chest discomfort [Unknown]
  - Paranasal sinus hypersecretion [Not Recovered/Not Resolved]
  - Chest pain [Recovered/Resolved]
  - Cough [Not Recovered/Not Resolved]

NARRATIVE: CASE EVENT DATE: 20171014
